FAERS Safety Report 7866540-8 (Version None)
Quarter: 2011Q4

REPORT INFORMATION
  Report Type: 
  Country: None (occurrence: None)
  Receive Date: 20111028
  Receipt Date: 20110701
  Transmission Date: 20120403
  Serious: No
  Sender: FDA-Public Use
  Company Number: US-GLAXOSMITHKLINE-A0934780A

PATIENT
  Age: 30 Year
  Sex: Male

DRUGS (8)
  1. VITAMIN TAB [Concomitant]
  2. ADVAIR DISKUS 100/50 [Suspect]
     Indication: ASTHMA
     Dosage: 1PUFF TWICE PER DAY
     Route: 055
     Dates: start: 20110622, end: 20110626
  3. ZOLOFT [Concomitant]
  4. ZYRTEC [Concomitant]
  5. ALLERGY SHOT [Concomitant]
  6. FLUTICASONE PROPIONATE [Concomitant]
  7. PREVACID [Concomitant]
  8. CLONAZEPAM [Concomitant]

REACTIONS (2)
  - DYSPNOEA [None]
  - PRODUCT QUALITY ISSUE [None]
